FAERS Safety Report 17215245 (Version 1)
Quarter: 2019Q4

REPORT INFORMATION
  Report Type: Report from Study
  Country: US (occurrence: US)
  Receive Date: 20191230
  Receipt Date: 20191230
  Transmission Date: 20200122
  Serious: No
  Sender: FDA-Public Use
  Company Number: US-CLOVIS ONCOLOGY-CLO-2019-002388

PATIENT
  Sex: Female

DRUGS (2)
  1. RUBRACA [Suspect]
     Active Substance: RUCAPARIB CAMSYLATE
     Indication: NEOPLASM MALIGNANT
  2. RUBRACA [Suspect]
     Active Substance: RUCAPARIB CAMSYLATE
     Indication: NEOPLASM MALIGNANT
     Dosage: 300 MG, BID
     Route: 048
     Dates: start: 20191011

REACTIONS (3)
  - Gastrooesophageal reflux disease [Unknown]
  - Nausea [Unknown]
  - Epistaxis [Unknown]

NARRATIVE: CASE EVENT DATE: 2019
